FAERS Safety Report 17521715 (Version 1)
Quarter: 2020Q1

REPORT INFORMATION
  Report Type: Spontaneous
  Country: US (occurrence: US)
  Receive Date: 20200310
  Receipt Date: 20200310
  Transmission Date: 20200409
  Serious: No
  Sender: FDA-Public Use
  Company Number: US-FARMAPROD-201910-1683

PATIENT
  Age: 80 Year
  Sex: Male

DRUGS (4)
  1. OXERVATE [Suspect]
     Active Substance: CENEGERMIN-BKBJ
     Indication: NEUROTROPHIC KERATOPATHY
     Route: 047
     Dates: start: 20190929
  2. ACYCLOVIR. [Concomitant]
     Active Substance: ACYCLOVIR
     Indication: HERPES SIMPLEX
     Route: 048
     Dates: start: 20150501
  3. TEARS [Concomitant]
     Active Substance: LANOLIN\PARAFFIN
     Indication: DRY EYE
     Dosage: 1-3 TIMES A DAY
     Route: 047
     Dates: start: 20181221
  4. HYDROEYE [Concomitant]
     Active Substance: MINERALS\OMEGA-3 FATTY ACIDS\VITAMINS
     Indication: DRY EYE
     Route: 048
     Dates: start: 20140908

REACTIONS (2)
  - Eye irritation [Recovered/Resolved]
  - Intraocular pressure increased [Recovered/Resolved]

NARRATIVE: CASE EVENT DATE: 20190929
